FAERS Safety Report 20981282 (Version 1)
Quarter: 2022Q2

REPORT INFORMATION
  Report Type: Spontaneous
  Country: US (occurrence: US)
  Receive Date: 20220620
  Receipt Date: 20220620
  Transmission Date: 20220720
  Serious: No
  Sender: FDA-Public Use
  Company Number: US-ASTELLAS-2021US023002

PATIENT
  Age: 81 Year
  Sex: Male

DRUGS (1)
  1. VESICARE [Suspect]
     Active Substance: SOLIFENACIN SUCCINATE
     Indication: Hypertonic bladder
     Route: 048
     Dates: end: 2021

REACTIONS (3)
  - Memory impairment [Not Recovered/Not Resolved]
  - Dry mouth [Recovered/Resolved]
  - Constipation [Recovered/Resolved]
